FAERS Safety Report 19158515 (Version 2)
Quarter: 2021Q3

REPORT INFORMATION
  Report Type: Report from Study
  Country: US (occurrence: US)
  Receive Date: 20210420
  Receipt Date: 20210730
  Transmission Date: 20211014
  Serious: Yes (Other)
  Sender: FDA-Public Use
  Company Number: US-JAZZ-2021-US-006780

PATIENT
  Sex: Female

DRUGS (5)
  1. XYREM [Suspect]
     Active Substance: SODIUM OXYBATE
     Dosage: 3 GRAM, SECOND DOSE
     Route: 048
     Dates: start: 202009, end: 2021
  2. ZYRTEC [Concomitant]
     Active Substance: CETIRIZINE HYDROCHLORIDE
     Indication: PRODUCT USED FOR UNKNOWN INDICATION
  3. XYREM [Suspect]
     Active Substance: SODIUM OXYBATE
     Dosage: DOSE ADJUSTMENT
     Route: 048
     Dates: start: 201202, end: 202009
  4. XYREM [Suspect]
     Active Substance: SODIUM OXYBATE
     Indication: NARCOLEPSY
     Dosage: 2.5 GRAM, BID
     Route: 048
     Dates: start: 201111, end: 201201
  5. XYREM [Suspect]
     Active Substance: SODIUM OXYBATE
     Dosage: 6 GRAM, FIRST DOSE
     Route: 048
     Dates: start: 202009, end: 2021

REACTIONS (3)
  - Condition aggravated [Not Recovered/Not Resolved]
  - Drug intolerance [Unknown]
  - Chronic kidney disease [Not Recovered/Not Resolved]
